FAERS Safety Report 8222546-0 (Version None)
Quarter: 2012Q1

REPORT INFORMATION
  Report Type: 
  Country: None (occurrence: None)
  Receive Date: 20120312
  Receipt Date: 20111130
  Transmission Date: 20120608
  Serious: Yes (Other)
  Sender: FDA-Public Use
  Company Number: JP-1189271

PATIENT
  Age: 56 Year
  Sex: Male

DRUGS (2)
  1. NEVANAC [Suspect]
     Indication: POSTOPERATIVE CARE
     Dosage: (1 GTT TID OU OPHTHALMIC), (1 GTT QID OS OPHTHALMIC)
     Route: 047
     Dates: start: 20110805, end: 20111104
  2. NEVANAC [Suspect]
     Indication: POSTOPERATIVE CARE
     Dosage: (1 GTT TID OU OPHTHALMIC), (1 GTT QID OS OPHTHALMIC)
     Route: 047
     Dates: start: 20110629, end: 20110714

REACTIONS (2)
  - ULCERATIVE KERATITIS [None]
  - CORNEAL OPACITY [None]
